FAERS Safety Report 4358394-1 (Version None)
Quarter: 2004Q2

REPORT INFORMATION
  Report Type: 
  Country: None (occurrence: None)
  Receive Date: 20040512
  Receipt Date: 20040512
  Transmission Date: 20050107
  Serious: No
  Sender: FDA-Public Use
  Company Number: None

PATIENT
  Age: 54 Year
  Sex: Female
  Weight: 45.3597 kg

DRUGS (2)
  1. ACTONEL [Suspect]
     Indication: OSTEOPENIA
     Dosage: DAILY
  2. ACTONEL [Suspect]
     Indication: OSTEOPENIA
     Dosage: WEEKLY

REACTIONS (7)
  - ARTHRALGIA [None]
  - EPICONDYLITIS [None]
  - JOINT SWELLING [None]
  - MUSCULOSKELETAL STIFFNESS [None]
  - PAIN IN EXTREMITY [None]
  - TENDONITIS [None]
  - TRIGGER FINGER [None]
